FAERS Safety Report 17566376 (Version 1)
Quarter: 2020Q1

REPORT INFORMATION
  Report Type: Spontaneous
  Country: FR (occurrence: FR)
  Receive Date: 20200320
  Receipt Date: 20200320
  Transmission Date: 20200409
  Serious: Yes (Hospitalization)
  Sender: FDA-Public Use
  Company Number: FR-JNJFOC-20200319270

PATIENT
  Age: 89 Year
  Sex: Female
  Weight: 89 kg

DRUGS (5)
  1. ATENOLOL ARROW [Concomitant]
     Active Substance: ATENOLOL
     Indication: PRODUCT USED FOR UNKNOWN INDICATION
     Route: 048
  2. LYRICA [Suspect]
     Active Substance: PREGABALIN
     Indication: PAIN
     Route: 048
     Dates: start: 20190829
  3. SERESTA [Suspect]
     Active Substance: OXAZEPAM
     Indication: AGGRESSION
     Route: 048
     Dates: start: 2017
  4. RISPERDAL [Suspect]
     Active Substance: RISPERIDONE
     Indication: AGGRESSION
     Route: 048
     Dates: start: 2017
  5. PRADAXA [Concomitant]
     Active Substance: DABIGATRAN ETEXILATE MESYLATE
     Indication: PRODUCT USED FOR UNKNOWN INDICATION
     Route: 048

REACTIONS (2)
  - Somnolence [Recovered/Resolved]
  - Bladder dilatation [Recovered/Resolved]

NARRATIVE: CASE EVENT DATE: 20200118
